FAERS Safety Report 8904317 (Version 1)
Quarter: 2012Q4

REPORT INFORMATION
  Report Type: 
  Country: DE (occurrence: DE)
  Receive Date: 20121112
  Receipt Date: 20121112
  Transmission Date: 20130627
  Serious: Yes (Hospitalization, Congenital Anomaly, Other)
  Sender: FDA-Public Use
  Company Number: DE-GLAXOSMITHKLINE-D0077647A

PATIENT
  Age: 0 None
  Sex: Female
  Weight: 3 kg

DRUGS (4)
  1. PAROXETIN [Suspect]
     Indication: DEPRESSION
     Dosage: 20MG per day
     Route: 064
     Dates: start: 20100801, end: 20110506
  2. FOLIC ACID [Concomitant]
     Indication: PROPHYLAXIS OF NEURAL TUBE DEFECT
     Route: 064
  3. IODINE [Concomitant]
     Indication: PROPHYLAXIS OF NEURAL TUBE DEFECT
     Route: 064
  4. VITAMIN [Concomitant]
     Indication: PROPHYLAXIS OF NEURAL TUBE DEFECT
     Route: 064

REACTIONS (3)
  - Atrial septal defect [Unknown]
  - Neonatal respiratory distress syndrome [Recovered/Resolved]
  - Hypoglycaemia neonatal [Recovered/Resolved]
